FAERS Safety Report 10397687 (Version 3)
Quarter: 2014Q3

REPORT INFORMATION
  Report Type: Spontaneous
  Country: US (occurrence: US)
  Receive Date: 20140821
  Receipt Date: 20140911
  Transmission Date: 20150326
  Serious: Yes (Other)
  Sender: FDA-Public Use
  Company Number: US-AMGEN-USASP2014057016

PATIENT
  Age: 40 Year
  Sex: Female

DRUGS (4)
  1. ARAVA [Concomitant]
     Active Substance: LEFLUNOMIDE
     Dosage: 10 MG, QD
     Dates: start: 20140718, end: 20140722
  2. METHOTREXATE [Concomitant]
     Active Substance: METHOTREXATE
     Dosage: 2.5 MG, QWK 4 TABLETS
     Route: 048
     Dates: start: 201404, end: 201404
  3. HUMIRA [Concomitant]
     Active Substance: ADALIMUMAB
     Dosage: UNK
     Route: 065
     Dates: start: 20140816
  4. ENBREL [Suspect]
     Active Substance: ETANERCEPT
     Indication: RHEUMATOID ARTHRITIS
     Dosage: 50 MG, QWK
     Route: 065
     Dates: start: 20140412, end: 20140809

REACTIONS (13)
  - Peripheral swelling [Not Recovered/Not Resolved]
  - Chondropathy [Not Recovered/Not Resolved]
  - Vertigo [Recovered/Resolved]
  - Arthralgia [Not Recovered/Not Resolved]
  - Incorrect dose administered [Recovered/Resolved]
  - Nausea [Recovered/Resolved]
  - Arthropathy [Not Recovered/Not Resolved]
  - Arthroscopic surgery [Not Recovered/Not Resolved]
  - Alopecia [Recovered/Resolved]
  - Dizziness [Recovered/Resolved]
  - Balance disorder [Recovered/Resolved]
  - Pain in extremity [Not Recovered/Not Resolved]
  - Mobility decreased [Not Recovered/Not Resolved]

NARRATIVE: CASE EVENT DATE: 201404
